FAERS Safety Report 26165490 (Version 1)
Quarter: 2025Q4

REPORT INFORMATION
  Report Type: Spontaneous
  Country: US (occurrence: None)
  Receive Date: 20251216
  Receipt Date: 20251216
  Transmission Date: 20260118
  Serious: Yes (Disabling, Other)
  Sender: FDA-CTU
  Company Number: None

PATIENT
  Age: 29 Year
  Sex: Male
  Weight: 0.11 kg

DRUGS (1)
  1. KETOCONAZOLE [Suspect]
     Active Substance: KETOCONAZOLE
     Indication: Drug therapy
     Dosage: OTHER QUANTITY : 4 OUNCE(S);?OTHER FREQUENCY : THREE TIMES A WEEK;
     Route: 061
     Dates: start: 20200101, end: 20200101

REACTIONS (5)
  - Application site pain [None]
  - Application site reaction [None]
  - Vascular rupture [None]
  - Victim of crime [None]
  - Victim of sexual abuse [None]

NARRATIVE: CASE EVENT DATE: 20200101
